FAERS Safety Report 25055856 (Version 1)
Quarter: 2025Q1

REPORT INFORMATION
  Report Type: Spontaneous
  Country: US (occurrence: US)
  Receive Date: 20250309
  Receipt Date: 20250309
  Transmission Date: 20250408
  Serious: No
  Sender: BRISTOL-MYERS SQUIBB COMPANY
  Company Number: US-BRISTOL-MYERS SQUIBB COMPANY-2025-031762

PATIENT
  Sex: Female

DRUGS (2)
  1. COBENFY [Suspect]
     Active Substance: TROSPIUM CHLORIDE\XANOMELINE
     Indication: Schizophrenia
     Dosage: DOSE : 50 MG/20 MG FREQ : TWICE DAILY
     Route: 048
     Dates: start: 2025, end: 2025
  2. COBENFY [Suspect]
     Active Substance: TROSPIUM CHLORIDE\XANOMELINE
     Dosage: 100 MG/20 MG; FREQ : TWICE DAILY
     Route: 048
     Dates: start: 2025, end: 2025

REACTIONS (2)
  - Chest pain [Unknown]
  - Tremor [Unknown]

NARRATIVE: CASE EVENT DATE: 20250101
